FAERS Safety Report 12715096 (Version 2)
Quarter: 2016Q3

REPORT INFORMATION
  Report Type: Spontaneous
  Country: IT (occurrence: IT)
  Receive Date: 20160905
  Receipt Date: 20160923
  Transmission Date: 20161109
  Serious: Yes (Life-Threatening, Hospitalization, Other)
  Sender: FDA-Public Use
  Company Number: IT-ELI_LILLY_AND_COMPANY-IT201609000194

PATIENT
  Age: 52 Year
  Sex: Female

DRUGS (8)
  1. ZYPADHERA [Suspect]
     Active Substance: OLANZAPINE PAMOATE
     Indication: SCHIZOAFFECTIVE DISORDER
     Dosage: 210 MG, UNKNOWN
     Route: 065
     Dates: start: 20150420
  2. TEGRETOL [Concomitant]
     Active Substance: CARBAMAZEPINE
     Dosage: 200 MG, QD
     Route: 065
  3. ZYPADHERA [Suspect]
     Active Substance: OLANZAPINE PAMOATE
     Dosage: 300 MG, UNKNOWN
     Route: 065
  4. TEGRETOL [Concomitant]
     Active Substance: CARBAMAZEPINE
     Dosage: 400 MG, QD
  5. TEGRETOL [Concomitant]
     Active Substance: CARBAMAZEPINE
     Dosage: 300 MG, UNKNOWN
     Route: 048
  6. EUTHYROX [Concomitant]
     Active Substance: LEVOTHYROXINE SODIUM
     Indication: THYROID DISORDER
  7. ZYPADHERA [Suspect]
     Active Substance: OLANZAPINE PAMOATE
     Dosage: 405 MG, MONTHLY (1/M)
     Route: 030
     Dates: start: 20160420, end: 201608
  8. ZYPREXA [Concomitant]
     Active Substance: OLANZAPINE
     Indication: MOOD ALTERED
     Dosage: UNK UNK, PRN
     Route: 065

REACTIONS (16)
  - Dystonia [Recovered/Resolved]
  - Pyrexia [Recovered/Resolved]
  - Musculoskeletal disorder [Recovered/Resolved]
  - Conversion disorder [Recovered/Resolved]
  - Malaise [Recovered/Resolved]
  - Malaise [Recovered/Resolved]
  - Seizure like phenomena [Recovered/Resolved]
  - Memory impairment [Unknown]
  - Asthenia [Unknown]
  - Coma [Recovered/Resolved]
  - Loss of consciousness [Recovered/Resolved]
  - Blood pressure decreased [Recovered/Resolved]
  - Blood creatine phosphokinase increased [Unknown]
  - Hypoaesthesia [Unknown]
  - Hypotension [Recovered/Resolved]
  - Sedation [Recovered/Resolved]

NARRATIVE: CASE EVENT DATE: 201608
